FAERS Safety Report 6983558-8 (Version None)
Quarter: 2010Q3

REPORT INFORMATION
  Report Type: 
  Country: None (occurrence: None)
  Receive Date: 20100914
  Receipt Date: 20080910
  Transmission Date: 20110219
  Serious: No
  Sender: FDA-Public Use
  Company Number: US-WYE-H05956908

PATIENT
  Age: 38 Year
  Sex: Female
  Weight: 64.92 kg

DRUGS (1)
  1. ADVIL LIQUI-GELS [Suspect]
     Indication: TOOTHACHE
     Dosage: 1 TABLET THREE TO FOUR TIMES DAILY
     Route: 048
     Dates: start: 20080813

REACTIONS (2)
  - DYSGEUSIA [None]
  - DYSPEPSIA [None]
